FAERS Safety Report 5238717-1 (Version None)
Quarter: 2007Q1

REPORT INFORMATION
  Report Type: 
  Country: None (occurrence: None)
  Receive Date: 20070215
  Receipt Date: 20070205
  Transmission Date: 20070707
  Serious: Yes (Hospitalization)
  Sender: FDA-Public Use
  Company Number: FR-PFIZER INC-2007010073

PATIENT
  Age: 95 Year
  Sex: Female
  Weight: 50 kg

DRUGS (6)
  1. LYRICA [Suspect]
     Indication: NEURALGIA
     Route: 048
     Dates: start: 20061123, end: 20061214
  2. CORTANCYL [Concomitant]
     Route: 048
  3. LASIX [Concomitant]
     Route: 048
  4. MEDIATENSYL [Concomitant]
     Route: 048
  5. LERCAN [Concomitant]
     Route: 048
  6. INIPOMP [Concomitant]

REACTIONS (2)
  - CARDIAC FAILURE [None]
  - SINUS BRADYCARDIA [None]
